FAERS Safety Report 8623932-7 (Version None)
Quarter: 2012Q3

REPORT INFORMATION
  Report Type: 
  Country: None (occurrence: None)
  Receive Date: 20120827
  Receipt Date: 20120822
  Transmission Date: 20120928
  Serious: Yes (Other)
  Sender: FDA-Public Use
  Company Number: PHEH2012US016648

PATIENT
  Sex: Female

DRUGS (13)
  1. DIVALPROEX SODIUM [Concomitant]
     Dosage: 500 MG, BID
  2. CYCLOBENZAPRINE [Concomitant]
     Dosage: 10 MG, UNK
  3. PANTOPRAZOLE SODIUM [Concomitant]
     Dosage: 40 MG, UNK
  4. LORATADINE [Concomitant]
     Dosage: 10 MG, UNK
  5. BUMETANIDE [Concomitant]
     Dosage: 1 MG, UNK
  6. OXYCODONE HCL [Concomitant]
     Dosage: 10 MG, UNK
  7. VITAMIN D [Concomitant]
     Dosage: 1000 U, UNK
  8. GILENYA [Suspect]
     Indication: MULTIPLE SCLEROSIS
     Dosage: 0.5 MG, DAILY
     Route: 048
     Dates: start: 20120701
  9. MIRTAZAPINE [Concomitant]
     Dosage: 15 MG, UNK
  10. HYDROXYZINE [Concomitant]
     Dosage: 25 MG, UNK
  11. ALPRAZOLAM [Concomitant]
     Dosage: 0.5 MG, UNK
  12. FENTANYL [Concomitant]
     Dosage: 100 MCG/HR PATCH
  13. DEXAMETHASONE [Concomitant]
     Dosage: 4 MG, UNK

REACTIONS (9)
  - CHILLS [None]
  - NECK PAIN [None]
  - PALPITATIONS [None]
  - ABDOMINAL PAIN UPPER [None]
  - NAUSEA [None]
  - HEADACHE [None]
  - SELF-INJURIOUS IDEATION [None]
  - MALAISE [None]
  - DECREASED APPETITE [None]
